FAERS Safety Report 20204916 (Version 2)
Quarter: 2022Q4

REPORT INFORMATION
  Report Type: Report from Study
  Country: US (occurrence: None)
  Receive Date: 20211220
  Receipt Date: 20221109
  Transmission Date: 20230112
  Serious: Yes (Hospitalization, Other)
  Sender: FDA-Public Use
  Company Number: US-ROCHE-2775476

PATIENT
  Age: 62 Year
  Sex: Female
  Weight: 94.3 kg

DRUGS (2)
  1. BEVACIZUMAB [Suspect]
     Active Substance: BEVACIZUMAB
     Indication: Ovarian epithelial cancer
     Route: 042
     Dates: start: 20201216
  2. ANETUMAB RAVTANSINE [Suspect]
     Active Substance: ANETUMAB RAVTANSINE
     Indication: Ovarian epithelial cancer
     Dosage: 2.2 MG/KG
     Route: 042
     Dates: start: 20201216

REACTIONS (5)
  - Abdominal pain [Recovered/Resolved]
  - Anaemia [Unknown]
  - Pneumonia [Unknown]
  - Stoma site haemorrhage [Unknown]
  - Aspartate aminotransferase increased [Unknown]

NARRATIVE: CASE EVENT DATE: 20201216
